FAERS Safety Report 7897945-7 (Version None)
Quarter: 2011Q4

REPORT INFORMATION
  Report Type: 
  Country: None (occurrence: None)
  Receive Date: 20111107
  Receipt Date: 20111024
  Transmission Date: 20120403
  Serious: Yes (Life-Threatening, Hospitalization, Other)
  Sender: FDA-Public Use
  Company Number: DE-ELI_LILLY_AND_COMPANY-DE201110006347

PATIENT
  Age: 48 Year
  Sex: Female

DRUGS (4)
  1. LORAZEPAM [Concomitant]
     Dosage: 10 MG, SINGLE
     Dates: start: 20111022, end: 20111022
  2. CLORAZEPATE DIPOTASSIUM [Concomitant]
     Dosage: 10 DF, SINGLE
     Dates: start: 20111022, end: 20111022
  3. CYMBALTA [Suspect]
     Dosage: 3600 MG, SINGLE
     Dates: start: 20111022, end: 20111022
  4. TRIMIPRAMINE MALEATE [Concomitant]
     Dosage: 10000 MG, SINGLE
     Dates: start: 20111022, end: 20111022

REACTIONS (3)
  - INTENTIONAL OVERDOSE [None]
  - ENDOTRACHEAL INTUBATION [None]
  - SUICIDE ATTEMPT [None]
